FAERS Safety Report 5386367-9 (Version None)
Quarter: 2007Q3

REPORT INFORMATION
  Report Type: 
  Country: None (occurrence: None)
  Receive Date: 20070713
  Receipt Date: 20070704
  Transmission Date: 20080115
  Serious: Yes (Other)
  Sender: FDA-Public Use
  Company Number: DE-AMGEN-US233073

PATIENT
  Age: 51 Year
  Sex: Female

DRUGS (2)
  1. ENBREL [Suspect]
     Indication: RHEUMATOID ARTHRITIS
     Route: 058
     Dates: start: 20020301, end: 20070101
  2. HUMIRA [Suspect]
     Dosage: UNKNOWN
     Dates: start: 20070201

REACTIONS (1)
  - TENDONITIS [None]
